FAERS Safety Report 16794963 (Version 1)
Quarter: 2019Q3

REPORT INFORMATION
  Report Type: Spontaneous
  Country: US (occurrence: US)
  Receive Date: 20190911
  Receipt Date: 20190911
  Transmission Date: 20191005
  Serious: No
  Sender: FDA-Public Use
  Company Number: US-STRIDES ARCOLAB LIMITED-2018SP008089

PATIENT

DRUGS (1)
  1. ERGOCALCIFEROL. [Suspect]
     Active Substance: ERGOCALCIFEROL
     Indication: PRODUCT USED FOR UNKNOWN INDICATION
     Dosage: RECEIVED ONCE DAILY, INSTEAD OF ONCE A WEAK
     Route: 065
     Dates: end: 20180917

REACTIONS (2)
  - Product administration error [Unknown]
  - Nausea [Recovered/Resolved]
